FAERS Safety Report 13012700 (Version 7)
Quarter: 2017Q1

REPORT INFORMATION
  Report Type: Spontaneous
  Country: JP (occurrence: JP)
  Receive Date: 20161209
  Receipt Date: 20170328
  Transmission Date: 20170428
  Serious: Yes (Hospitalization)
  Sender: FDA-Public Use
  Company Number: JP-JNJFOC-20161203099

PATIENT
  Age: 76 Year
  Sex: Male
  Weight: 59 kg

DRUGS (17)
  1. AMBROXOL HYDROCHLORIDE [Concomitant]
     Active Substance: AMBROXOL HYDROCHLORIDE
     Route: 048
     Dates: start: 20160901
  2. TARCEVA [Concomitant]
     Active Substance: ERLOTINIB HYDROCHLORIDE
     Route: 048
     Dates: start: 20140130, end: 20160704
  3. MAGMITT [Concomitant]
     Active Substance: MAGNESIUM OXIDE
     Indication: CONSTIPATION
     Route: 048
  4. RANMARK [Concomitant]
     Active Substance: DENOSUMAB
     Indication: PROPHYLAXIS
     Route: 065
     Dates: end: 20170104
  5. ZYTIGA [Suspect]
     Active Substance: ABIRATERONE ACETATE
     Indication: HORMONE-REFRACTORY PROSTATE CANCER
     Route: 048
     Dates: start: 20160901
  6. AMBROXOL HYDROCHLORIDE [Concomitant]
     Active Substance: AMBROXOL HYDROCHLORIDE
     Route: 048
     Dates: end: 20160819
  7. DENOTAS [Concomitant]
     Active Substance: CALCIUM CARBONATE\CHOLECALCIFEROL\MAGNESIUM CARBONATE
     Route: 048
     Dates: start: 20160905
  8. LEUPLIN [Concomitant]
     Active Substance: LEUPROLIDE ACETATE
     Indication: HORMONE-REFRACTORY PROSTATE CANCER
     Route: 065
     Dates: end: 20170104
  9. DENOTAS [Concomitant]
     Active Substance: CALCIUM CARBONATE\CHOLECALCIFEROL\MAGNESIUM CARBONATE
     Route: 048
     Dates: end: 20170124
  10. SENNOSIDE [Concomitant]
     Active Substance: SENNOSIDES
     Indication: CONSTIPATION
     Route: 048
  11. FAMOTIDINE. [Suspect]
     Active Substance: FAMOTIDINE
     Indication: PROPHYLAXIS AGAINST GASTROINTESTINAL ULCER
     Route: 048
     Dates: start: 20160704, end: 20160823
  12. DAIPHEN [Concomitant]
     Active Substance: SULFAMETHOXAZOLE\TRIMETHOPRIM
     Route: 048
  13. ZYTIGA [Suspect]
     Active Substance: ABIRATERONE ACETATE
     Indication: HORMONE-REFRACTORY PROSTATE CANCER
     Route: 048
     Dates: start: 20160509, end: 20160819
  14. PREDONINE [Suspect]
     Active Substance: PREDNISOLONE
     Indication: HORMONE-REFRACTORY PROSTATE CANCER
     Route: 048
  15. DIMEMORFAN PHOSPHATE [Concomitant]
     Active Substance: DIMEMORFAN PHOSPHATE
     Indication: COUGH
     Route: 048
     Dates: end: 20160819
  16. TAKECAB [Concomitant]
     Active Substance: VONOPRAZAN FUMURATE
     Indication: PROPHYLAXIS
     Route: 048
     Dates: start: 20160823
  17. NEUTROGIN [Concomitant]
     Active Substance: LENOGRASTIM
     Indication: FEBRILE NEUTROPENIA
     Route: 065
     Dates: start: 20160817, end: 20160825

REACTIONS (5)
  - Pneumonia bacterial [Recovering/Resolving]
  - Febrile neutropenia [Recovering/Resolving]
  - Interstitial lung disease [Recovering/Resolving]
  - Influenza [Recovered/Resolved]
  - White blood cell count decreased [Recovering/Resolving]

NARRATIVE: CASE EVENT DATE: 20160817
